FAERS Safety Report 17894211 (Version 1)
Quarter: 2020Q2

REPORT INFORMATION
  Report Type: Spontaneous
  Country: JP (occurrence: JP)
  Receive Date: 20200615
  Receipt Date: 20200615
  Transmission Date: 20200714
  Serious: Yes (Death, Hospitalization, Other)
  Sender: FDA-Public Use
  Company Number: JP-GLAXOSMITHKLINE-JP2020JPN099115

PATIENT
  Age: 40 Year
  Sex: Female

DRUGS (1)
  1. BENLYSTA [Suspect]
     Active Substance: BELIMUMAB
     Indication: SYSTEMIC LUPUS ERYTHEMATOSUS
     Dosage: UNK
     Route: 058
     Dates: start: 20190118

REACTIONS (3)
  - Hypoglycaemic encephalopathy [Unknown]
  - Suicide attempt [Unknown]
  - Infection [Fatal]

NARRATIVE: CASE EVENT DATE: 2019
